FAERS Safety Report 8836873 (Version 3)
Quarter: 2012Q4

REPORT INFORMATION
  Report Type: 
  Country: US (occurrence: US)
  Receive Date: 20121012
  Receipt Date: 20121109
  Transmission Date: 20130627
  Serious: Yes (Life-Threatening, Hospitalization, Other)
  Sender: FDA-Public Use
  Company Number: US-GENZYME-CLOF-1002328

PATIENT
  Age: 13 Year
  Sex: Female
  Weight: 123 kg

DRUGS (64)
  1. CLOLAR [Suspect]
     Indication: LYMPHOCYTIC LEUKAEMIA
     Dosage: 30 mg/m2, qd, (on days 29-33; consolidation part 2)
     Route: 042
     Dates: start: 20120629, end: 20120703
  2. CYTARABINE [Suspect]
     Indication: LYMPHOCYTIC LEUKAEMIA
     Dosage: 70 mg, UNK (day 1; induction)
     Route: 037
  3. CYTARABINE [Suspect]
     Dosage: 75 mg/m2, qd,(days 1-4; consolidation part 1)
     Route: 042
     Dates: start: 20120523, end: 20120526
  4. CYTARABINE [Suspect]
     Dosage: 75 mg/m2, qd, (8-11 days, consolidation part 1)
     Route: 042
     Dates: start: 20120530, end: 20120602
  5. DAUNORUBICIN [Suspect]
     Indication: LYMPHOCYTIC LEUKAEMIA
     Dosage: 25 mg/m2, qd(day 1,8,15 and 22; induction)
     Route: 042
     Dates: start: 20120411, end: 20120503
  6. MERCAPTOPURINE [Suspect]
     Indication: LYMPHOCYTIC LEUKAEMIA
     Dosage: 60 mg/m2, UNK (Days1-14; consolidation part 1)
     Route: 048
     Dates: start: 20120523, end: 20120605
  7. MERCAPTOPURINE [Suspect]
     Dosage: 25 mg/m2, UNK (days 1,15,29 and 43; interim maintenance I with HD MRX)
     Route: 048
  8. METHOTREXATE [Suspect]
     Indication: LYMPHOCYTIC LEUKAEMIA
     Dosage: UNK (day 8 and 29; induction)
     Route: 037
     Dates: start: 20120418, end: 20120418
  9. METHOTREXATE [Suspect]
     Dosage: UNK (days 1,8,15 and 22; consolidation part 1)
     Route: 037
  10. METHOTREXATE [Suspect]
     Dosage: 5000 mg/m2, UNK (day 1,15,29 and 43; interim maintenance I with HD MRX)
     Route: 042
  11. METHOTREXATE [Suspect]
     Dosage: 15 mg, UNK (days 1and 29;interim maintenance I with HD MRX)
     Route: 037
  12. METHOTREXATE [Suspect]
     Dosage: UNK
     Route: 039
     Dates: start: 20120418, end: 20120418
  13. METHOTREXATE [Suspect]
     Dosage: UNK
     Route: 037
     Dates: start: 20120510, end: 20120510
  14. METHOTREXATE [Suspect]
     Dosage: UNK
     Route: 037
     Dates: start: 20120523, end: 20120523
  15. METHOTREXATE [Suspect]
     Dosage: UNK
     Route: 037
     Dates: start: 20120531, end: 20120531
  16. METHOTREXATE [Suspect]
     Dosage: UNK
     Route: 037
     Dates: start: 20120608, end: 20120608
  17. METHOTREXATE [Suspect]
     Dosage: UNK
     Route: 037
     Dates: start: 20120614, end: 20120614
  18. PEG-L-ASPARAGINASE [Suspect]
     Indication: LYMPHOCYTIC LEUKAEMIA
     Dosage: 2500 iu/m2, qd, day 4 (induction)
     Route: 042
     Dates: start: 20120414, end: 20120414
  19. PEG-L-ASPARAGINASE [Suspect]
     Dosage: 2500 iu/m2, qd, day 15 (consolidation part 1)
     Route: 042
     Dates: start: 20120608, end: 20120608
  20. PEG-L-ASPARAGINASE [Suspect]
     Dosage: 2500 iu/m2, qd,day 43 (consolidation part 2)
     Route: 042
     Dates: start: 20120714, end: 20120714
  21. PREDNISONE [Suspect]
     Indication: LYMPHOCYTIC LEUKAEMIA
     Dosage: 30 mg/m2, bid, days 1-28 (induction)
     Route: 048
     Dates: start: 20120411, end: 20120509
  22. LEUCOVORIN [Suspect]
     Indication: LYMPHOCYTIC LEUKAEMIA
     Dosage: 15 mg/m2, 6 hrsx 24 hrs(days 3-4, 17-18, 31-32 and 45-46)
     Route: 065
     Dates: start: 20120608, end: 20120609
  23. CYCLOPHOSPHAMIDE [Suspect]
     Indication: LYMPHOCYTIC LEUKAEMIA
     Dosage: 440 mg/m2, UNK (days 29-33; consolidation part 2)
     Route: 042
  24. ETOPOSIDE [Suspect]
     Indication: LYMPHOCYTIC LEUKAEMIA
     Dosage: 100 mcg/m2, UNK (days 29-33; consolidation part 2)
     Route: 042
  25. VINCRISTINE SULFATE [Suspect]
     Indication: LYMPHOCYTIC LEUKAEMIA
     Dosage: 1.5 mg/m2, once, ( induction day 1)
     Route: 042
     Dates: start: 20120411, end: 20120411
  26. VINCRISTINE SULFATE [Suspect]
     Dosage: 1.5 mg/m2, once, (induction day 8)
     Route: 042
     Dates: start: 20120418, end: 20120418
  27. VINCRISTINE SULFATE [Suspect]
     Dosage: 1.5 mg/m2, once, (induction day 15)
     Route: 042
     Dates: start: 20120427, end: 20120427
  28. VINCRISTINE SULFATE [Suspect]
     Dosage: 1.5 mg/m2, once, (induction day 22)
     Route: 042
     Dates: start: 20120503, end: 20120503
  29. VINCRISTINE SULFATE [Suspect]
     Dosage: 1.5 mg/m2, UNK (day 15; consolidation part 1)
     Route: 042
     Dates: start: 20120608, end: 20120608
  30. VINCRISTINE SULFATE [Suspect]
     Dosage: 1.5 mg/m2, once, (day 22; consolidation part 1)
     Route: 042
     Dates: start: 20120614, end: 20120614
  31. VINCRISTINE SULFATE [Suspect]
     Dosage: 1.5 mg/m2, once,(days 43; consolidation part 2)
     Route: 042
     Dates: start: 20120714, end: 20120714
  32. VINCRISTINE SULFATE [Suspect]
     Dosage: 1.5 mg/m2, once, day 50; consolidation 2)
     Route: 042
     Dates: start: 20120721, end: 20120721
  33. VINCRISTINE SULFATE [Suspect]
     Dosage: 1.5 mg/m2, UNK1.5 mg/m2, UNK (days 1,15,29 and 43)
     Route: 042
  34. CEFEPIME [Concomitant]
     Indication: PRODUCT USED FOR UNKNOWN INDICATION
     Dosage: 2 g, UNK
     Route: 042
     Dates: start: 20120706, end: 20120802
  35. DDAVP [Concomitant]
     Indication: PRODUCT USED FOR UNKNOWN INDICATION
     Dosage: 0.1 mg, bid
     Route: 048
     Dates: start: 20120626, end: 20120729
  36. BENADRYL [Concomitant]
     Indication: PRODUCT USED FOR UNKNOWN INDICATION
     Dosage: 50 mg, tid
     Route: 042
     Dates: start: 20120707, end: 20120718
  37. BENADRYL [Concomitant]
     Dosage: 50 mg, q12hr
     Route: 042
     Dates: start: 20120718, end: 20120726
  38. ENOXAPARIN [Concomitant]
     Indication: PRODUCT USED FOR UNKNOWN INDICATION
     Dosage: 65 mg, bid
     Route: 058
     Dates: start: 20120628, end: 20120728
  39. FAMOTIDIN [Concomitant]
     Indication: PRODUCT USED FOR UNKNOWN INDICATION
     Dosage: 40 mg, qd
     Route: 042
     Dates: start: 20120714, end: 20120813
  40. FILGRASTIM [Concomitant]
     Indication: PRODUCT USED FOR UNKNOWN INDICATION
     Dosage: 480 mcg, qd
     Route: 042
     Dates: start: 20120706, end: 20120720
  41. FLUCONAZOLE [Concomitant]
     Indication: PRODUCT USED FOR UNKNOWN INDICATION
     Dosage: 400 mg, qd
     Route: 048
     Dates: start: 20120628, end: 20120705
  42. METFORMIN [Concomitant]
     Indication: PRODUCT USED FOR UNKNOWN INDICATION
     Dosage: 850 mcg, bid
     Route: 048
     Dates: start: 20120628, end: 20120728
  43. NAFCILLIN [Concomitant]
     Indication: PRODUCT USED FOR UNKNOWN INDICATION
     Dosage: 1 g, q 6 hrs
     Route: 042
     Dates: start: 20120709, end: 20120714
  44. NAFCILLIN [Concomitant]
     Dosage: 1 g, q 6 hrs
     Route: 042
     Dates: start: 20120714, end: 20120724
  45. ONDANSETRON [Concomitant]
     Indication: PRODUCT USED FOR UNKNOWN INDICATION
     Dosage: 8 mg,q 6 hrs
     Route: 042
     Dates: start: 20120628, end: 20120728
  46. ONDANSETRON [Concomitant]
     Dosage: 8 mg, q 6 hrs
     Route: 042
     Dates: start: 20120714, end: 20120813
  47. SEPTRA DS [Concomitant]
     Indication: PRODUCT USED FOR UNKNOWN INDICATION
     Dosage: UNK
     Route: 048
  48. VANCOMYCIN [Concomitant]
     Indication: PRODUCT USED FOR UNKNOWN INDICATION
     Dosage: 1.75 g, UNK (q 8 hrs)
     Route: 042
     Dates: start: 20120706, end: 20120711
  49. VANCOMYCIN [Concomitant]
     Dosage: 1 g, q12hr
     Route: 042
     Dates: start: 20120718, end: 20120725
  50. EPINEPHRINE [Concomitant]
     Indication: PRODUCT USED FOR UNKNOWN INDICATION
     Dosage: 0.5 mg, once
     Route: 042
     Dates: start: 20120714, end: 20120714
  51. LIDOCAINE [Concomitant]
     Indication: PRODUCT USED FOR UNKNOWN INDICATION
     Dosage: UNK
     Route: 065
  52. MAGNESIUM SULFATE [Concomitant]
     Indication: PRODUCT USED FOR UNKNOWN INDICATION
     Dosage: 3.5 g, once
     Route: 042
     Dates: start: 20120716, end: 20120716
  53. MAGNESIUM SULFATE [Concomitant]
     Dosage: 3.5 g, once
     Route: 042
     Dates: start: 20120719, end: 20120719
  54. MAGNESIUM SULFATE [Concomitant]
     Dosage: 3.5 g, once
     Route: 042
     Dates: start: 20120721, end: 20120721
  55. METHYLPREDNISOLONE [Concomitant]
     Indication: PRODUCT USED FOR UNKNOWN INDICATION
     Dosage: 125 mg, once
     Route: 042
     Dates: start: 20120714, end: 20120714
  56. TYLENOL [Concomitant]
     Indication: PRODUCT USED FOR UNKNOWN INDICATION
     Dosage: 650 mcg, prn (Q 6 hrs)
     Route: 048
     Dates: start: 20120629, end: 20120729
  57. ALBUTEROL [Concomitant]
     Indication: PRODUCT USED FOR UNKNOWN INDICATION
     Dosage: 0.25 mg, prn
     Route: 065
  58. HEPARIN [Concomitant]
     Indication: PRODUCT USED FOR UNKNOWN INDICATION
     Dosage: 50 Units, prn
     Route: 042
  59. LORAZEPAM [Concomitant]
     Indication: PRODUCT USED FOR UNKNOWN INDICATION
     Dosage: 0.5 mg, prn
     Route: 042
  60. INTRAVENOUS FLUIDS [Concomitant]
     Indication: PRODUCT USED FOR UNKNOWN INDICATION
     Dosage: UNK (0.45 NS+ potassium chloride 20 MEQ TRA 250 ml/hr)
     Route: 065
     Dates: start: 20120628, end: 20120728
  61. INTRAVENOUS FLUIDS [Concomitant]
     Dosage: UNK (0.9 NS + potassium chloride 20 MEQ TRA 250 ml/hr)
     Route: 065
     Dates: start: 20120630, end: 20120704
  62. INTRAVENOUS FLUIDS [Concomitant]
     Dosage: UNK (0.45 NS + potassium chloride 20 MEQ TRA 125 ml/hr)
     Route: 065
     Dates: start: 20120704, end: 20120803
  63. INTRAVENOUS FLUIDS [Concomitant]
     Dosage: UNK (0.045 NS+ potassium acetate 20 MEQ TRA 90 ml/hr)
     Route: 065
     Dates: start: 20120705, end: 20120804
  64. INTRAVENOUS FLUIDS [Concomitant]
     Dosage: UNK (0.45 NS + potassium chloride 20 MEQ TRA 50 ml/hr)
     Route: 065
     Dates: start: 20120707, end: 20120806

REACTIONS (11)
  - Atelectasis [Recovered/Resolved]
  - Hypomagnesaemia [Unknown]
  - Hypokalaemia [Unknown]
  - Hyponatraemia [Unknown]
  - Hypocalcaemia [Unknown]
  - Hypernatraemia [Recovered/Resolved]
  - Hypertension [Recovered/Resolved]
  - Urinary tract infection enterococcal [Recovered/Resolved]
  - Stomatitis [Recovered/Resolved]
  - Lung consolidation [None]
  - Mucosal inflammation [None]
